FAERS Safety Report 16608074 (Version 3)
Quarter: 2021Q3

REPORT INFORMATION
  Report Type: Report from Study
  Country: CO (occurrence: CO)
  Receive Date: 20190722
  Receipt Date: 20210820
  Transmission Date: 20211014
  Serious: Yes (Other)
  Sender: FDA-Public Use
  Company Number: CO-AMGEN-COLSL2019114423

PATIENT
  Age: 46 Year
  Sex: Female

DRUGS (3)
  1. NPLATE [Suspect]
     Active Substance: ROMIPLOSTIM
     Indication: IMMUNE THROMBOCYTOPENIA
     Dosage: 175 MICROGRAM, QWK
     Route: 042
     Dates: start: 20150619
  2. NPLATE [Suspect]
     Active Substance: ROMIPLOSTIM
     Indication: LOW DENSITY LIPOPROTEIN INCREASED
     Dosage: 100 MICROGRAM, QWK
     Route: 042
     Dates: start: 20200128
  3. NPLATE [Suspect]
     Active Substance: ROMIPLOSTIM
     Dosage: 150 MICROGRAM, QWK
     Route: 058

REACTIONS (2)
  - Thrombocytopenia [Recovering/Resolving]
  - Thrombocytosis [Not Recovered/Not Resolved]
